FAERS Safety Report 14019252 (Version 1)
Quarter: 2017Q3

REPORT INFORMATION
  Report Type: Spontaneous
  Country: US (occurrence: US)
  Receive Date: 20170928
  Receipt Date: 20170928
  Transmission Date: 20171128
  Serious: No
  Sender: FDA-Public Use
  Company Number: US-BION-005945

PATIENT
  Age: 74 Year
  Sex: Male
  Weight: 90.91 kg

DRUGS (1)
  1. EQUATE LOPERAMIDE 120CT [Suspect]
     Active Substance: LOPERAMIDE HYDROCHLORIDE
     Indication: DIARRHOEA
     Dosage: 2 MG SOFTGELS, 1 SOFTGEL IN THE MORNING, AND ONE SOFTGEL IN THE EVENING
     Route: 048
     Dates: start: 20170110

REACTIONS (2)
  - Foreign body in respiratory tract [Recovered/Resolved]
  - Burning sensation [Recovered/Resolved]

NARRATIVE: CASE EVENT DATE: 20170124
